FAERS Safety Report 7270256-9 (Version None)
Quarter: 2011Q1

REPORT INFORMATION
  Report Type: 
  Country: None (occurrence: None)
  Receive Date: 20110125
  Receipt Date: 20110113
  Transmission Date: 20110831
  Serious: Yes (Other)
  Sender: FDA-Public Use
  Company Number: 2523595-2011-00002

PATIENT
  Age: 13 Year
  Sex: Male
  Weight: 31 kg

DRUGS (1)
  1. UVADEX [Suspect]
     Indication: GRAFT VERSUS HOST DISEASE
     Dosage: PER ECP TREATMENT;
     Dates: start: 20110111, end: 20110112

REACTIONS (2)
  - PYREXIA [None]
  - HAEMATURIA [None]
